FAERS Safety Report 19955070 (Version 3)
Quarter: 2023Q2

REPORT INFORMATION
  Report Type: Report from Study
  Country: CA (occurrence: CA)
  Receive Date: 20211014
  Receipt Date: 20230530
  Transmission Date: 20230721
  Serious: Yes (Other)
  Sender: FDA-Public Use
  Company Number: CA-ABBVIE-21K-028-4116793-00

PATIENT
  Age: 41 Year
  Sex: Male

DRUGS (5)
  1. HUMIRA [Suspect]
     Active Substance: ADALIMUMAB
     Indication: Crohn^s disease
     Dosage: STRENGTH: 40 MG
     Route: 058
  2. HUMIRA [Suspect]
     Active Substance: ADALIMUMAB
     Dosage: STRENGTH: 40 MG
     Route: 058
  3. HUMIRA [Suspect]
     Active Substance: ADALIMUMAB
     Dosage: STRENGTH: 40 MG
     Route: 058
  4. HUMIRA [Suspect]
     Active Substance: ADALIMUMAB
     Indication: Crohn^s disease
     Route: 058
  5. PREDNISONE [Concomitant]
     Active Substance: PREDNISONE
     Indication: Product used for unknown indication
     Dosage: DISCONTINUED IN SUMMER 2016
     Route: 065

REACTIONS (12)
  - Intestinal anastomosis [Unknown]
  - Colitis [Unknown]
  - Large intestinal ulcer [Unknown]
  - Terminal ileitis [Unknown]
  - Large intestinal ulcer [Unknown]
  - Serum ferritin decreased [Not Recovered/Not Resolved]
  - Anastomotic ulcer [Unknown]
  - Diarrhoea [Unknown]
  - Vitamin B12 deficiency [Unknown]
  - Skin cancer [Unknown]
  - Impaired healing [Unknown]
  - Drug intolerance [Unknown]

NARRATIVE: CASE EVENT DATE: 20151201
